FAERS Safety Report 12488885 (Version 2)
Quarter: 2016Q3

REPORT INFORMATION
  Report Type: Spontaneous
  Country: US (occurrence: US)
  Receive Date: 20160622
  Receipt Date: 20160817
  Transmission Date: 20161109
  Serious: Yes (Hospitalization, Other)
  Sender: FDA-Public Use
  Company Number: US-PFIZER INC-2016301522

PATIENT
  Age: 61 Year
  Sex: Male

DRUGS (8)
  1. DEPO-TESTOSTERONE [Suspect]
     Active Substance: TESTOSTERONE CYPIONATE
     Indication: HORMONE REPLACEMENT THERAPY
     Dosage: 1 ML, WEEKLY (ONCE PER WEEK)
     Dates: start: 20130804, end: 20131006
  2. DEPO-TESTOSTERONE [Suspect]
     Active Substance: TESTOSTERONE CYPIONATE
     Dosage: 1 ML, WEEKLY (ONCE PER WEEK)
     Dates: start: 20140105, end: 20140309
  3. ANDROGEL [Suspect]
     Active Substance: TESTOSTERONE
     Dosage: 5 G, DAILY (EVERY MORNING, 1%)
     Dates: start: 20110425, end: 20110525
  4. TESTOSTERONE CYPIONATE. [Suspect]
     Active Substance: TESTOSTERONE CYPIONATE
     Indication: HORMONE REPLACEMENT THERAPY
     Dosage: 1 ML, EVERY 2 WEEKS
     Dates: start: 20090202, end: 20091102
  5. TESTOSTERONE CYPIONATE. [Suspect]
     Active Substance: TESTOSTERONE CYPIONATE
     Dosage: 1 ML, EVERY 2 WEEKS
     Dates: start: 20091015, end: 20100715
  6. TESTOSTERONE CYPIONATE. [Suspect]
     Active Substance: TESTOSTERONE CYPIONATE
     Dosage: 0.5 ML, WEEKLY (ONCE PER WEEK)
     Dates: start: 20140210, end: 20140726
  7. ANDROGEL [Suspect]
     Active Substance: TESTOSTERONE
     Indication: HORMONE REPLACEMENT THERAPY
     Dosage: 6 PUMPS, DAILY (1%)
     Dates: start: 20090918, end: 20091008
  8. ANDROGEL [Suspect]
     Active Substance: TESTOSTERONE
     Dosage: 2 PUMPS, DAILY (1.62 %)
     Dates: start: 20110321, end: 20121002

REACTIONS (4)
  - Cerebrovascular accident [Unknown]
  - Facial paralysis [Not Recovered/Not Resolved]
  - Drooling [Not Recovered/Not Resolved]
  - Amnesia [Not Recovered/Not Resolved]

NARRATIVE: CASE EVENT DATE: 201407
